FAERS Safety Report 10988376 (Version 4)
Quarter: 2015Q2

REPORT INFORMATION
  Report Type: Spontaneous
  Country: US (occurrence: US)
  Receive Date: 20150404
  Receipt Date: 20150525
  Transmission Date: 20150821
  Serious: No
  Sender: FDA-Public Use
  Company Number: US-JNJFOC-20150104419

PATIENT
  Sex: Female
  Weight: 73.03 kg

DRUGS (11)
  1. BENADRYL [Interacting]
     Active Substance: DIPHENHYDRAMINE HYDROCHLORIDE
     Indication: PREMEDICATION
     Route: 042
  2. REMICADE [Suspect]
     Active Substance: INFLIXIMAB
     Indication: RHEUMATOID ARTHRITIS
     Route: 042
     Dates: start: 20010116, end: 2012
  3. METFORMIN [Concomitant]
     Active Substance: METFORMIN HYDROCHLORIDE
     Indication: DIABETES MELLITUS
     Route: 065
  4. REMICADE [Suspect]
     Active Substance: INFLIXIMAB
     Indication: RHEUMATOID ARTHRITIS
     Route: 042
     Dates: start: 20150106
  5. LISINOPRIL. [Concomitant]
     Active Substance: LISINOPRIL
     Indication: DIABETES MELLITUS
     Route: 065
  6. METHOTREXATE [Concomitant]
     Active Substance: METHOTREXATE
     Route: 065
  7. REMICADE [Suspect]
     Active Substance: INFLIXIMAB
     Indication: RHEUMATOID ARTHRITIS
     Route: 042
     Dates: start: 20140722
  8. TYLENOL [Concomitant]
     Active Substance: ACETAMINOPHEN
     Indication: PREMEDICATION
     Route: 048
     Dates: start: 2002
  9. BENADRYL [Concomitant]
     Active Substance: DIPHENHYDRAMINE HYDROCHLORIDE
     Indication: PREMEDICATION
     Route: 048
     Dates: start: 2002
  10. REMICADE [Suspect]
     Active Substance: INFLIXIMAB
     Indication: RHEUMATOID ARTHRITIS
     Route: 042
     Dates: start: 20020116, end: 2013
  11. REMICADE [Suspect]
     Active Substance: INFLIXIMAB
     Indication: RHEUMATOID ARTHRITIS
     Route: 042
     Dates: start: 20140219

REACTIONS (24)
  - Swelling [Unknown]
  - Eye movement disorder [Unknown]
  - Myalgia [Unknown]
  - Drug effect decreased [Unknown]
  - Wrong drug administered [Unknown]
  - Dysphonia [Unknown]
  - Hypokinesia [Unknown]
  - Fatigue [Unknown]
  - Head discomfort [Unknown]
  - Inflammation [Unknown]
  - Drug interaction [Unknown]
  - Bedridden [Unknown]
  - Drug dose omission [Unknown]
  - Weight increased [Not Recovered/Not Resolved]
  - Pain [Unknown]
  - Dysarthria [Unknown]
  - Speech disorder [Unknown]
  - Asthenopia [Unknown]
  - Muscular weakness [Unknown]
  - Wrong technique in drug usage process [Unknown]
  - Infusion related reaction [Unknown]
  - Muscle tightness [Unknown]
  - Adverse drug reaction [Unknown]
  - Heart rate increased [Unknown]

NARRATIVE: CASE EVENT DATE: 2001
